FAERS Safety Report 12596730 (Version 2)
Quarter: 2016Q3

REPORT INFORMATION
  Report Type: Spontaneous
  Country: US (occurrence: US)
  Receive Date: 20160726
  Receipt Date: 20160818
  Transmission Date: 20161109
  Serious: No
  Sender: FDA-Public Use
  Company Number: US-ASTRAZENECA-2016SE61381

PATIENT
  Age: 4159 Week
  Sex: Female
  Weight: 49.9 kg

DRUGS (4)
  1. SYMBICORT [Suspect]
     Active Substance: BUDESONIDE\FORMOTEROL FUMARATE DIHYDRATE
     Indication: CHRONIC OBSTRUCTIVE PULMONARY DISEASE
     Dosage: 80/4.5, 2 PUFFS TWICE DAILY
     Route: 055
  2. METOPROLOL SUCCINATE. [Suspect]
     Active Substance: METOPROLOL SUCCINATE
     Indication: HEART RATE INCREASED
     Route: 048
  3. LEVOXIL [Concomitant]
     Indication: THYROID DISORDER
  4. BABY ASPIRIN [Concomitant]
     Active Substance: ASPIRIN
     Dosage: DAILY

REACTIONS (6)
  - Memory impairment [Recovering/Resolving]
  - Chronic obstructive pulmonary disease [Unknown]
  - Device failure [Unknown]
  - Body height decreased [Unknown]
  - Drug dose omission [Not Recovered/Not Resolved]
  - Weight decreased [Unknown]

NARRATIVE: CASE EVENT DATE: 201606
